FAERS Safety Report 8876735 (Version 1)
Quarter: 2012Q4

REPORT INFORMATION
  Report Type: 
  Country: BR (occurrence: BR)
  Receive Date: 20121029
  Receipt Date: 20121029
  Transmission Date: 20130627
  Serious: Yes (Hospitalization)
  Sender: FDA-Public Use
  Company Number: BR-PFIZER INC-2012241597

PATIENT
  Age: 50 Year
  Sex: Male

DRUGS (2)
  1. LYRICA [Suspect]
     Indication: ARTHROSIS
     Route: 048
  2. LYRICA [Suspect]
     Indication: KNEE PAIN

REACTIONS (4)
  - Knee operation [Unknown]
  - Bradyphrenia [Unknown]
  - Memory impairment [Unknown]
  - Off label use [Unknown]
